FAERS Safety Report 18707409 (Version 1)
Quarter: 2021Q1

REPORT INFORMATION
  Report Type: Spontaneous
  Country: US (occurrence: US)
  Receive Date: 20210106
  Receipt Date: 20210106
  Transmission Date: 20210419
  Serious: No
  Sender: FDA-Public Use
  Company Number: US-VERTEX PHARMACEUTICALS-2020-025598

PATIENT
  Sex: Female

DRUGS (6)
  1. SODIUM CHLORIDE. [Concomitant]
     Active Substance: SODIUM CHLORIDE
     Dosage: 10 %
  2. TRIKAFTA [Suspect]
     Active Substance: ELEXACAFTOR\IVACAFTOR\TEZACAFTOR
     Indication: CYSTIC FIBROSIS
     Dosage: 2TABS (ELEXA100MG/TEZA50MG/IVA75MG) AM AND 1 TAB (IVA150MG) PM, BID
     Route: 048
  3. TOPAMAX [Suspect]
     Active Substance: TOPIRAMATE
     Indication: PRODUCT USED FOR UNKNOWN INDICATION
     Dosage: UNK
     Route: 065
     Dates: end: 20201204
  4. CREON [Concomitant]
     Active Substance: PANCRELIPASE AMYLASE\PANCRELIPASE LIPASE\PANCRELIPASE PROTEASE
     Dosage: UNK
  5. PULMOZYME [Concomitant]
     Active Substance: DORNASE ALFA
     Dosage: 2.5 MG, BID
     Route: 055
  6. TOBI [Concomitant]
     Active Substance: TOBRAMYCIN

REACTIONS (4)
  - Anxiety [Not Recovered/Not Resolved]
  - Panic attack [Recovered/Resolved]
  - Migraine [Unknown]
  - Mania [Unknown]

NARRATIVE: CASE EVENT DATE: 2020
